FAERS Safety Report 7769919-8 (Version None)
Quarter: 2011Q3

REPORT INFORMATION
  Report Type: 
  Country: None (occurrence: None)
  Receive Date: 20110922
  Receipt Date: 20110916
  Transmission Date: 20111222
  Serious: Yes (Hospitalization)
  Sender: FDA-Public Use
  Company Number: US-GLAXOSMITHKLINE-A0890317A

PATIENT
  Sex: Female
  Weight: 110.5 kg

DRUGS (6)
  1. NORTRIPTYLINE HCL [Concomitant]
  2. AVANDIA [Suspect]
     Indication: DIABETES MELLITUS
     Route: 048
     Dates: start: 20020101
  3. METOPROLOL TARTRATE [Concomitant]
  4. LISINOPRIL [Concomitant]
  5. GLUCOVANCE [Concomitant]
  6. LIPITOR [Concomitant]

REACTIONS (10)
  - SYNCOPE [None]
  - POST PROCEDURAL COMPLICATION [None]
  - HEART RATE DECREASED [None]
  - MYOCARDIAL INFARCTION [None]
  - CARDIOMEGALY [None]
  - HAEMOTHORAX [None]
  - BLOOD PRESSURE DECREASED [None]
  - RENAL FAILURE ACUTE [None]
  - ACUTE MYOCARDIAL INFARCTION [None]
  - CARDIAC FAILURE CONGESTIVE [None]
